FAERS Safety Report 25213751 (Version 1)
Quarter: 2025Q2

REPORT INFORMATION
  Report Type: Spontaneous
  Country: GB (occurrence: GB)
  Receive Date: 20250418
  Receipt Date: 20250418
  Transmission Date: 20250717
  Serious: Yes (Other)
  Sender: PFIZER
  Company Number: None

PATIENT
  Age: 69 Year
  Sex: Female

DRUGS (13)
  1. LINEZOLID [Suspect]
     Active Substance: LINEZOLID
     Dosage: 600 MG, 2X/DAY FOR ONE WEEK
     Dates: start: 20250328
  2. RAMIPRIL [Concomitant]
     Active Substance: RAMIPRIL
  3. ATORVASTATIN [Concomitant]
     Active Substance: ATORVASTATIN
  4. COCODAMOL [Concomitant]
     Active Substance: ACETAMINOPHEN\CODEINE PHOSPHATE
  5. SENNOSIDES A AND B [Concomitant]
     Active Substance: SENNOSIDES A AND B
  6. SOLIFENACIN [Concomitant]
     Active Substance: SOLIFENACIN
  7. METOCLOPRAMIDE [Concomitant]
     Active Substance: METOCLOPRAMIDE
  8. PROPRANOLOL [Concomitant]
     Active Substance: PROPRANOLOL HYDROCHLORIDE
  9. OMEPRAZOLE [Concomitant]
     Active Substance: OMEPRAZOLE
  10. AMITRIPTYLINE [Concomitant]
     Active Substance: AMITRIPTYLINE
  11. CYANOCOBALAMIN [Concomitant]
     Active Substance: CYANOCOBALAMIN
  12. CEPHALEXIN [Concomitant]
     Active Substance: CEPHALEXIN
  13. QUININE SULFATE [Concomitant]
     Active Substance: QUININE SULFATE

REACTIONS (3)
  - Ageusia [Unknown]
  - Stomatitis [Unknown]
  - Oral discomfort [Unknown]
